FAERS Safety Report 9515767 (Version 1)
Quarter: 2013Q3

REPORT INFORMATION
  Report Type: Spontaneous
  Country: US (occurrence: US)
  Receive Date: 20130911
  Receipt Date: 20130911
  Transmission Date: 20140515
  Serious: Yes (Other)
  Sender: FDA-Public Use
  Company Number: US-PFIZER INC-2013257943

PATIENT
  Age: 49 Year
  Sex: Male
  Weight: 118.37 kg

DRUGS (2)
  1. REVATIO [Suspect]
     Indication: PULMONARY ARTERIAL HYPERTENSION
     Dosage: 80 MG (BY TAKING FOUR 20MG TABLETS TOGETHER),  3X/DAY
     Route: 048
  2. REMODULIN [Concomitant]
     Dosage: UNK

REACTIONS (3)
  - Respiratory tract infection [Unknown]
  - Bronchitis [Unknown]
  - Respiratory tract congestion [Unknown]
